FAERS Safety Report 24641301 (Version 2)
Quarter: 2025Q1

REPORT INFORMATION
  Report Type: Spontaneous
  Country: US (occurrence: US)
  Receive Date: 20241120
  Receipt Date: 20250108
  Transmission Date: 20250408
  Serious: Yes (Hospitalization, Other)
  Sender: AMGEN
  Company Number: US-AMGEN-USASP2024224387

PATIENT
  Age: 75 Year
  Sex: Female
  Weight: 96.7 kg

DRUGS (7)
  1. XGEVA [Suspect]
     Active Substance: DENOSUMAB
     Indication: Metastases to bone
     Dosage: UNK, QMO
     Route: 065
     Dates: start: 20201215
  2. REPATHA [Suspect]
     Active Substance: EVOLOCUMAB
     Indication: Product used for unknown indication
     Route: 065
  3. IBRANCE [Suspect]
     Active Substance: PALBOCICLIB
     Indication: Breast cancer metastatic
     Route: 048
     Dates: start: 20201209
  4. IBRANCE [Suspect]
     Active Substance: PALBOCICLIB
     Route: 048
     Dates: start: 20221021
  5. ELIQUIS [Suspect]
     Active Substance: APIXABAN
     Indication: Pulmonary embolism
     Dosage: 2.5 MILLIGRAM, BID
     Route: 065
  6. ELIQUIS [Suspect]
     Active Substance: APIXABAN
     Dosage: 5 MILLIGRAM, BID
     Route: 065
  7. FEMARA [Suspect]
     Active Substance: LETROZOLE
     Indication: Product used for unknown indication
     Dosage: UNK, QD
     Route: 065
     Dates: start: 20201209

REACTIONS (17)
  - Pulmonary embolism [Recovering/Resolving]
  - Gastrointestinal haemorrhage [Unknown]
  - Duodenal ulcer [Unknown]
  - Anaemia [Unknown]
  - Renal disorder [Unknown]
  - Mental disorder [Unknown]
  - Rotator cuff syndrome [Not Recovered/Not Resolved]
  - Lymphadenopathy [Unknown]
  - Thyroid mass [Unknown]
  - White blood cell count decreased [Unknown]
  - Haematocrit decreased [Not Recovered/Not Resolved]
  - Troponin increased [Recovering/Resolving]
  - Full blood count abnormal [Unknown]
  - Metabolic function test abnormal [Unknown]
  - Tooth fracture [Unknown]
  - Cough [Unknown]
  - Platelet count decreased [Unknown]

NARRATIVE: CASE EVENT DATE: 20210616
